FAERS Safety Report 20507411 (Version 1)
Quarter: 2022Q1

REPORT INFORMATION
  Report Type: Spontaneous
  Country: DE (occurrence: DE)
  Receive Date: 20220223
  Receipt Date: 20220223
  Transmission Date: 20220423
  Serious: Yes (Hospitalization, Other)
  Sender: FDA-Public Use
  Company Number: None

PATIENT
  Age: 1 Day
  Sex: Female
  Weight: 3.63 kg

DRUGS (2)
  1. VALSARTAN [Suspect]
     Active Substance: VALSARTAN
     Indication: Foetal exposure during pregnancy
     Dosage: MATERNAL DOSE: 480 MG PER DAY (3 SEPARATED DOSES)
     Route: 064
  2. METHYLDOPA [Concomitant]
     Active Substance: METHYLDOPA
     Indication: Foetal exposure during pregnancy
     Dosage: UNK
     Route: 064

REACTIONS (5)
  - Neonatal seizure [Recovered/Resolved]
  - Atrial septal defect [Unknown]
  - Ischaemic cerebral infarction [Unknown]
  - Renal failure [Recovering/Resolving]
  - Foetal exposure during pregnancy [Unknown]

NARRATIVE: CASE EVENT DATE: 20210401
